FAERS Safety Report 10270345 (Version 1)
Quarter: 2014Q2

REPORT INFORMATION
  Report Type: Spontaneous
  Country: US (occurrence: None)
  Receive Date: 20140627
  Receipt Date: 20140627
  Transmission Date: 20141212
  Serious: No
  Sender: FDA-Public Use
  Company Number: None

PATIENT
  Age: 65 Year
  Sex: Male

DRUGS (1)
  1. SUTENT 50MG CAP PFIZER [Suspect]
     Indication: RENAL CANCER
     Route: 048
     Dates: start: 20140516, end: 20140623

REACTIONS (6)
  - Nausea [None]
  - Vomiting [None]
  - Abdominal pain [None]
  - Constipation [None]
  - Stomatitis [None]
  - Therapy cessation [None]
